FAERS Safety Report 5413885-7 (Version None)
Quarter: 2007Q3

REPORT INFORMATION
  Report Type: 
  Country: None (occurrence: None)
  Receive Date: 20070814
  Receipt Date: 20070803
  Transmission Date: 20080115
  Serious: Yes (Hospitalization)
  Sender: FDA-Public Use
  Company Number: US-JNJFOC-20070703921

PATIENT
  Sex: Female

DRUGS (6)
  1. RISPERDAL CONSTA [Suspect]
     Indication: BIPOLAR DISORDER
     Dosage: ADMINISTERED HALF OF THE SUSPENSION (25MG)
     Route: 030
  2. REQUIP [Interacting]
     Indication: RESTLESS LEGS SYNDROME
  3. HEART MEDICATIONS [Concomitant]
     Indication: CARDIAC DISORDER
  4. COGENTIN [Concomitant]
     Indication: MUSCLE SPASMS
  5. LASIX [Concomitant]
  6. ISOPRIL [Concomitant]

REACTIONS (7)
  - ABDOMINAL DISTENSION [None]
  - AMNESIA [None]
  - DRUG INTERACTION [None]
  - INCORRECT DOSE ADMINISTERED [None]
  - INSOMNIA [None]
  - MUSCLE SPASMS [None]
  - WEIGHT INCREASED [None]
